FAERS Safety Report 6852070-9 (Version None)
Quarter: 2010Q3

REPORT INFORMATION
  Report Type: 
  Country: None (occurrence: None)
  Receive Date: 20100717
  Receipt Date: 20071107
  Transmission Date: 20110219
  Serious: No
  Sender: FDA-Public Use
  Company Number: US-PFIZER INC-2007095399

PATIENT
  Sex: Male
  Weight: 63.6 kg

DRUGS (5)
  1. CHANTIX [Suspect]
     Indication: SMOKING CESSATION THERAPY
     Route: 048
     Dates: start: 20071106
  2. PROTONIX [Concomitant]
     Indication: GASTROOESOPHAGEAL REFLUX DISEASE
     Route: 048
  3. VERAPAMIL [Concomitant]
     Route: 048
  4. LISINOPRIL [Concomitant]
     Route: 048
  5. ZOLPIDEM TARTRATE [Concomitant]
     Route: 048

REACTIONS (2)
  - ABDOMINAL DISCOMFORT [None]
  - HEADACHE [None]
